FAERS Safety Report 11275376 (Version 3)
Quarter: 2015Q3

REPORT INFORMATION
  Report Type: Spontaneous
  Country: DE (occurrence: DE)
  Receive Date: 20150716
  Receipt Date: 20150916
  Transmission Date: 20151125
  Serious: Yes (Other)
  Sender: FDA-Public Use
  Company Number: DE-SUN PHARMACEUTICAL INDUSTRIES LTD-2015RR-099996

PATIENT

DRUGS (6)
  1. CEFUROX BASICS 500 MG TABLETTEN [Suspect]
     Active Substance: CEFUROXIME
     Indication: BRONCHIAL IRRITATION
     Dosage: 500 MG, BID, 1-0-1
     Route: 048
     Dates: start: 201506
  2. NEBIVOLOL STADA [Concomitant]
     Indication: ARRHYTHMIA
     Dosage: 1/2, 1-0-0
     Route: 065
  3. CEFUROX BASICS 500 MG TABLETTEN [Suspect]
     Active Substance: CEFUROXIME
     Indication: HAEMOPTYSIS
  4. PREDNISOLON [Concomitant]
     Active Substance: PREDNISOLONE
     Indication: BRONCHITIS
     Dosage: 1-0-0, WEEK 25: 1, WEEK 26: 1/2, WEEK 27: 1/2, WEEK 28: 5MG, 1, WEEK 29: 5MG, 1/2
     Route: 065
  5. MARCUMAR [Concomitant]
     Active Substance: PHENPROCOUMON
     Indication: ATRIAL FIBRILLATION
     Dosage: 0.5 DF, QD, 0-0-1
     Route: 065
  6. THYRANOJOD [Concomitant]
     Indication: THYROIDECTOMY
     Dosage: 125 MG, QD, 1-0-0
     Route: 065

REACTIONS (2)
  - International normalised ratio increased [Recovered/Resolved]
  - Epistaxis [Recovered/Resolved]

NARRATIVE: CASE EVENT DATE: 201506
